FAERS Safety Report 5154100-1 (Version None)
Quarter: 2006Q4

REPORT INFORMATION
  Report Type: 
  Country: None (occurrence: None)
  Receive Date: 20061116
  Receipt Date: 20061116
  Transmission Date: 20070319
  Serious: Yes (Hospitalization)
  Sender: FDA-Public Use
  Company Number: None

PATIENT
  Age: 83 Year
  Sex: Male
  Weight: 61.6 kg

DRUGS (15)
  1. TERAZOSIN 2MG CAP [Suspect]
  2. SYNTHROID [Concomitant]
  3. NITROFURANTOIN MACROCRYSTALLINE [Concomitant]
  4. SODIUM POLYSTYENE SULF [Concomitant]
  5. METOCLOPRAMIDE HCL [Concomitant]
  6. ARTIFICIAL TEARS POLYVINYL ALCOHOL [Concomitant]
  7. ACETAMINOPHEN [Concomitant]
  8. OMEPRAZOLE [Concomitant]
  9. PHOSHORUS/POTASSIUM/SODIUM POWDER [Concomitant]
  10. MAGNESIUM OXIDE [Concomitant]
  11. ALBUTEROL [Concomitant]
  12. MULIVITAMINS/ZINC (CENTRUM) [Concomitant]
  13. FERROUS GLUCONATE [Concomitant]
  14. ASPIRIN [Concomitant]
  15. CEFTAZIDIME [Concomitant]

REACTIONS (1)
  - HYPOTENSION [None]
